FAERS Safety Report 5640266-3 (Version None)
Quarter: 2008Q1

REPORT INFORMATION
  Report Type: 
  Country: None (occurrence: None)
  Receive Date: 20080227
  Receipt Date: 20080221
  Transmission Date: 20080703
  Serious: Yes (Life-Threatening, Hospitalization)
  Sender: FDA-Public Use
  Company Number: FR-WYE-G01108108

PATIENT
  Sex: Male

DRUGS (8)
  1. TAZOCILLINE [Suspect]
     Indication: MUCORMYCOSIS
     Dosage: UNKNOWN
     Route: 042
     Dates: start: 20071002, end: 20071127
  2. LOVENOX [Concomitant]
     Dosage: UNKNOWN
     Route: 058
  3. ASCORBIC ACID [Concomitant]
     Dosage: UNKNOWN
  4. NEXIUM [Concomitant]
     Dosage: UNKNOWN
     Route: 048
  5. ISOPTIN [Concomitant]
     Dosage: UNKNOWN
     Route: 048
  6. ELISOR [Concomitant]
     Indication: DYSLIPIDAEMIA
     Dosage: UNKNOWN
     Route: 048
  7. POSACONAZOLE [Suspect]
     Indication: MUCORMYCOSIS
     Dosage: UNKNOWN
     Route: 048
     Dates: start: 20071017, end: 20071128
  8. INSULIN [Concomitant]
     Indication: TYPE 2 DIABETES MELLITUS
     Dosage: UNKNOWN
     Route: 058

REACTIONS (1)
  - FEBRILE NEUTROPENIA [None]
